FAERS Safety Report 7426811-6 (Version None)
Quarter: 2011Q2

REPORT INFORMATION
  Report Type: 
  Country: None (occurrence: None)
  Receive Date: 20110420
  Receipt Date: 20110412
  Transmission Date: 20111010
  Serious: Yes (Other)
  Sender: FDA-Public Use
  Company Number: US-MERCK-1011USA01281

PATIENT
  Age: 68 Year
  Sex: Female
  Weight: 65 kg

DRUGS (4)
  1. OXYBUTYNIN [Concomitant]
     Indication: URINARY INCONTINENCE
     Dosage: ^OVER 5 YEARS TO PRESENT^
     Route: 048
  2. FOSAMAX [Suspect]
     Indication: OSTEOPOROSIS PROPHYLAXIS
     Route: 048
     Dates: start: 20050223, end: 20100520
  3. ESTRADIOL [Concomitant]
     Indication: HORMONE REPLACEMENT THERAPY
     Route: 048
     Dates: start: 20000101
  4. [THERAPY UNSPECIFIED] [Concomitant]
     Dosage: ^5 TO 10 YEARS TO PRESENT^
     Route: 065

REACTIONS (34)
  - CARDIAC DISORDER [None]
  - ORAL HERPES [None]
  - INSOMNIA [None]
  - TOOTH DISORDER [None]
  - OROPHARYNGEAL PAIN [None]
  - CORONARY ARTERY DISEASE [None]
  - GALLBLADDER DISORDER [None]
  - CHRONIC OBSTRUCTIVE PULMONARY DISEASE [None]
  - HYPERTENSION [None]
  - ABSCESS [None]
  - GINGIVAL BLEEDING [None]
  - GAIT DISTURBANCE [None]
  - FALL [None]
  - CATARACT [None]
  - ADVERSE DRUG REACTION [None]
  - DEPRESSION [None]
  - EXOSTOSIS [None]
  - LACERATION [None]
  - PERIODONTAL DISEASE [None]
  - OSTEONECROSIS OF JAW [None]
  - ADENOIDAL DISORDER [None]
  - TONSILLAR DISORDER [None]
  - MIXED HYPERLIPIDAEMIA [None]
  - BACK PAIN [None]
  - DRY MOUTH [None]
  - UTERINE DISORDER [None]
  - TOOTH INFECTION [None]
  - TOOTH FRACTURE [None]
  - OSTEOARTHRITIS [None]
  - BRONCHITIS [None]
  - APPENDIX DISORDER [None]
  - OPEN WOUND [None]
  - NAUSEA [None]
  - GASTROOESOPHAGEAL REFLUX DISEASE [None]
